FAERS Safety Report 17752144 (Version 1)
Quarter: 2020Q2

REPORT INFORMATION
  Report Type: Spontaneous
  Country: IT (occurrence: IT)
  Receive Date: 20200506
  Receipt Date: 20200506
  Transmission Date: 20200714
  Serious: Yes (Hospitalization)
  Sender: FDA-Public Use
  Company Number: IT-PFIZER INC-2020178278

PATIENT
  Age: 35 Year
  Sex: Female
  Weight: 55 kg

DRUGS (1)
  1. DOSTINEX [Suspect]
     Active Substance: CABERGOLINE
     Indication: LACTATION INHIBITION THERAPY
     Dosage: 1 MG
     Route: 048
     Dates: start: 20200218, end: 20200218

REACTIONS (1)
  - Loss of consciousness [Recovering/Resolving]

NARRATIVE: CASE EVENT DATE: 20200219
